FAERS Safety Report 9449047 (Version 1)
Quarter: 2013Q3

REPORT INFORMATION
  Report Type: Spontaneous
  Country: US (occurrence: US)
  Receive Date: 20130808
  Receipt Date: 20130808
  Transmission Date: 20140515
  Serious: No
  Sender: FDA-Public Use
  Company Number: US-009507513-1307USA013572

PATIENT
  Sex: 0

DRUGS (1)
  1. COPPERTONE ULTRAGUARD SPF 50 [Suspect]
     Indication: PRODUCT USED FOR UNKNOWN INDICATION
     Dosage: UNK, UNKNOWN
     Route: 061

REACTIONS (6)
  - Sunburn [Unknown]
  - Blister [Unknown]
  - Insomnia [Recovered/Resolved]
  - Pruritus [Not Recovered/Not Resolved]
  - Activities of daily living impaired [Recovered/Resolved]
  - Skin exfoliation [Not Recovered/Not Resolved]
